FAERS Safety Report 21088370 (Version 1)
Quarter: 2022Q3

REPORT INFORMATION
  Report Type: Spontaneous
  Country: IT (occurrence: IT)
  Receive Date: 20220715
  Receipt Date: 20220715
  Transmission Date: 20221027
  Serious: Yes (Other)
  Sender: FDA-Public Use
  Company Number: IT-PFIZER INC-PV202200016741

PATIENT
  Age: 82 Year
  Sex: Female

DRUGS (6)
  1. PREGABALIN [Suspect]
     Active Substance: PREGABALIN
     Indication: Spinal compression fracture
     Dosage: UNK
  2. PREGABALIN [Suspect]
     Active Substance: PREGABALIN
     Indication: Osteoporosis
  3. PREGABALIN [Suspect]
     Active Substance: PREGABALIN
     Indication: Radical mastectomy
  4. DENOSUMAB [Suspect]
     Active Substance: DENOSUMAB
     Indication: Osteoporosis
     Dosage: UNK
  5. DENOSUMAB [Suspect]
     Active Substance: DENOSUMAB
     Indication: Radical mastectomy
  6. DENOSUMAB [Suspect]
     Active Substance: DENOSUMAB
     Indication: Spinal compression fracture

REACTIONS (1)
  - Drug-induced liver injury [Recovering/Resolving]
